FAERS Safety Report 12454594 (Version 1)
Quarter: 2016Q2

REPORT INFORMATION
  Report Type: Spontaneous
  Country: US (occurrence: US)
  Receive Date: 20160610
  Receipt Date: 20160610
  Transmission Date: 20160815
  Serious: Yes (Other)
  Sender: FDA-Public Use
  Company Number: US-ASTRAZENECA-2016SE60211

PATIENT
  Sex: Female

DRUGS (1)
  1. MOVANTIK [Suspect]
     Active Substance: NALOXEGOL OXALATE
     Indication: ILL-DEFINED DISORDER
     Route: 048
     Dates: start: 20160603, end: 20160603

REACTIONS (6)
  - Vomiting [Unknown]
  - Off label use [Unknown]
  - Muscle spasms [Unknown]
  - Lung neoplasm malignant [Unknown]
  - Diarrhoea [Unknown]
  - Nausea [Unknown]
